FAERS Safety Report 4499956-0 (Version None)
Quarter: 2004Q4

REPORT INFORMATION
  Report Type: 
  Country: None (occurrence: None)
  Receive Date: 20041109
  Receipt Date: 20041027
  Transmission Date: 20050328
  Serious: Yes (Death)
  Sender: FDA-Public Use
  Company Number: 2004S1003044

PATIENT
  Age: 51 Year
  Sex: Female

DRUGS (4)
  1. CLOZAPINE [Suspect]
     Indication: SCHIZOAFFECTIVE DISORDER
     Dosage: 300 MG/QHS, ORAL
     Route: 048
     Dates: start: 20011101, end: 20040901
  2. BIAXIN [Concomitant]
  3. PROMETHAZINE VC PLAIN [Concomitant]
  4. PAROXETINE [Concomitant]

REACTIONS (4)
  - BRONCHITIS [None]
  - CARDIAC FAILURE CONGESTIVE [None]
  - PNEUMONIA [None]
  - WEIGHT INCREASED [None]
